FAERS Safety Report 7771863-7 (Version None)
Quarter: 2011Q3

REPORT INFORMATION
  Report Type: 
  Country: None (occurrence: None)
  Receive Date: 20110922
  Receipt Date: 20100827
  Transmission Date: 20111222
  Serious: No
  Sender: FDA-Public Use
  Company Number: US-ASTRAZENECA-2010SE40474

PATIENT
  Age: 31 Year
  Sex: Female

DRUGS (4)
  1. SEROQUEL [Suspect]
     Indication: ANTIDEPRESSANT THERAPY
     Route: 048
     Dates: start: 20100301, end: 20100301
  2. SEROQUEL [Suspect]
     Dosage: 25 MG FOUR TIMES A WEEKK
     Route: 048
     Dates: start: 20100301
  3. SEROQUEL [Suspect]
     Dosage: 25 MG FOUR TIMES A WEEKK
     Route: 048
     Dates: start: 20100301
  4. SEROQUEL [Suspect]
     Indication: ANXIETY
     Route: 048
     Dates: start: 20100301, end: 20100301

REACTIONS (3)
  - INCORRECT DOSE ADMINISTERED [None]
  - FEELING ABNORMAL [None]
  - SOMNOLENCE [None]
